FAERS Safety Report 5196210-9 (Version None)
Quarter: 2006Q4

REPORT INFORMATION
  Report Type: 
  Country: None (occurrence: None)
  Receive Date: 20061222
  Receipt Date: 20061208
  Transmission Date: 20070319
  Serious: Yes (Hospitalization)
  Sender: FDA-Public Use
  Company Number: ENC200600004

PATIENT
  Age: 74 Year
  Sex: Male

DRUGS (11)
  1. ARGATROBAN [Suspect]
     Indication: CEREBRAL INFARCTION
     Dosage: 60 MG, BID, INTRAVENOUS; 10 MG INTRAVENOUS
     Route: 042
     Dates: start: 20060919, end: 20060921
  2. ARGATROBAN [Suspect]
     Indication: CEREBRAL INFARCTION
     Dosage: 60 MG, BID, INTRAVENOUS; 10 MG INTRAVENOUS
     Route: 042
     Dates: start: 20050922, end: 20060926
  3. ARGATROBAN [Suspect]
     Indication: CEREBRAL INFARCTION
     Dosage: 60 MG, BID, INTRAVENOUS; 10 MG INTRAVENOUS
     Route: 042
     Dates: start: 20060101
  4. RADICUT (EDARAVONE) [Concomitant]
  5. SOLDEM 3A (CARBOHYDRATES NOS, POTASSIUM CHLORIDE, SODIUM CHLORIDE, SOD [Concomitant]
  6. DIGOXIN [Concomitant]
  7. ASPIRIN [Concomitant]
  8. ALLOPURINOL [Concomitant]
  9. GLYBURIDE [Concomitant]
  10. MUCOSTA (REBAMIPIDE) [Concomitant]
  11. QVAR (BECLOMETASONE DIPROPIONATE) [Concomitant]

REACTIONS (8)
  - BLOOD LACTATE DEHYDROGENASE INCREASED [None]
  - BLOOD UREA INCREASED [None]
  - CAROTID ARTERY STENOSIS [None]
  - CEREBRAL ARTERIOSCLEROSIS [None]
  - CEREBRAL INFARCTION [None]
  - DISEASE RECURRENCE [None]
  - OEDEMA PERIPHERAL [None]
  - WHITE BLOOD CELL COUNT INCREASED [None]
